FAERS Safety Report 5345473-5 (Version None)
Quarter: 2007Q2

REPORT INFORMATION
  Report Type: 
  Country: None (occurrence: None)
  Receive Date: 20070605
  Receipt Date: 20070523
  Transmission Date: 20071010
  Serious: Yes (Hospitalization)
  Sender: FDA-Public Use
  Company Number: US-ELI_LILLY_AND_COMPANY-US200705006060

PATIENT
  Age: 85 Year
  Sex: Female

DRUGS (4)
  1. FORTEO [Suspect]
     Indication: OSTEOPOROSIS
     Dosage: UNK, UNK
     Dates: start: 20050817, end: 20060309
  2. FORTEO [Suspect]
     Dates: start: 20060301, end: 20060301
  3. FORTEO [Suspect]
     Dosage: UNK, UNK
     Dates: start: 20060322, end: 20060810
  4. FORTEO [Suspect]
     Dates: start: 20060815

REACTIONS (7)
  - BONE PAIN [None]
  - CONFUSIONAL STATE [None]
  - DEMENTIA [None]
  - DIARRHOEA [None]
  - FALL [None]
  - MALAISE [None]
  - SEDATION [None]
